FAERS Safety Report 24549153 (Version 1)
Quarter: 2024Q4

REPORT INFORMATION
  Report Type: Spontaneous
  Country: US (occurrence: US)
  Receive Date: 20241025
  Receipt Date: 20241025
  Transmission Date: 20250114
  Serious: No
  Sender: PFIZER
  Company Number: US-PFIZER INC-202400282518

PATIENT
  Age: 74 Year
  Sex: Male

DRUGS (1)
  1. VELSIPITY [Suspect]
     Active Substance: ETRASIMOD ARGININE
     Dosage: UNK

REACTIONS (4)
  - Diverticulum intestinal [Unknown]
  - Polyp [Unknown]
  - Eosinophilic oesophagitis [Unknown]
  - Diarrhoea [Unknown]
